FAERS Safety Report 9674872 (Version 5)
Quarter: 2014Q1

REPORT INFORMATION
  Report Type: Spontaneous
  Country: JP (occurrence: JP)
  Receive Date: 20131107
  Receipt Date: 20140331
  Transmission Date: 20141002
  Serious: Yes (Hospitalization, Other)
  Sender: FDA-Public Use
  Company Number: PHHY2013JP125454

PATIENT
  Age: 66 Year
  Sex: Female
  Weight: 52 kg

DRUGS (12)
  1. ZOMETA [Suspect]
     Indication: METASTASES TO BONE
     Dosage: 4 MG, (PER MONTH)
     Route: 041
     Dates: start: 20080801
  2. ZOMETA [Suspect]
     Dosage: 4 MG, (PER MONTH)
     Route: 041
     Dates: start: 20120525, end: 20130831
  3. FASLODEX [Concomitant]
     Dosage: 25 MG, UNK
     Route: 030
     Dates: start: 20120525
  4. FENTOS [Concomitant]
     Dosage: UNK UKN, UNK
     Route: 062
     Dates: start: 20120427
  5. OXINORM                            /07623501/ [Concomitant]
     Dosage: 10 MG, UNK
     Route: 048
     Dates: start: 20120427
  6. CALONAL [Concomitant]
     Dosage: 1800 MG, UNK
     Route: 048
     Dates: start: 20120427
  7. SENNOSIDE [Concomitant]
     Dosage: 24 MG, UNK
     Route: 048
     Dates: start: 20120427
  8. NOLVADEX//TAMOXIFEN CITRATE [Concomitant]
     Dosage: 20 MG, UNK
     Route: 048
     Dates: start: 20120427
  9. CRESTOR [Concomitant]
     Dosage: 5 MG, UNK
     Route: 048
     Dates: start: 20120608
  10. CONIEL [Concomitant]
     Dosage: 8 MG, UNK
     Route: 048
     Dates: start: 20120608
  11. NU-LOTAN [Concomitant]
     Dosage: 100 MG, UNK
     Route: 048
     Dates: start: 20120608
  12. LENDORMIN [Concomitant]
     Dosage: UNK UKN, UNK
     Route: 048
     Dates: start: 20120608

REACTIONS (12)
  - Osteonecrosis of jaw [Recovered/Resolved]
  - Erythema [Unknown]
  - Exposed bone in jaw [Unknown]
  - Swelling [Unknown]
  - Gingivitis [Unknown]
  - Hypophagia [Unknown]
  - Osteomyelitis [Unknown]
  - Pain [Unknown]
  - Sinusitis [Recovered/Resolved]
  - Sinobronchitis [Unknown]
  - Tooth loss [Unknown]
  - Periodontitis [Unknown]
